FAERS Safety Report 6092616-4 (Version None)
Quarter: 2009Q1

REPORT INFORMATION
  Report Type: 
  Country: None (occurrence: None)
  Receive Date: 20090223
  Receipt Date: 20090223
  Transmission Date: 20090719
  Serious: Yes (Other)
  Sender: FDA-Public Use
  Company Number: None

PATIENT
  Age: 44 Year
  Sex: Female
  Weight: 70.3075 kg

DRUGS (1)
  1. CYMBALTA [Suspect]
     Indication: ANXIETY
     Dosage: 60MG 1TIME/DAY PO
     Route: 048
     Dates: start: 20080801, end: 20090201

REACTIONS (7)
  - ARTHRALGIA [None]
  - DEPRESSION [None]
  - DIZZINESS [None]
  - INSOMNIA [None]
  - IRRITABILITY [None]
  - MOOD SWINGS [None]
  - PAIN IN EXTREMITY [None]
